FAERS Safety Report 6119076-9 (Version None)
Quarter: 2009Q1

REPORT INFORMATION
  Report Type: 
  Country: None (occurrence: None)
  Receive Date: 20090316
  Receipt Date: 20090304
  Transmission Date: 20090719
  Serious: Yes (Death, Other)
  Sender: FDA-Public Use
  Company Number: US-AMGEN-US336326

PATIENT
  Sex: Male

DRUGS (1)
  1. NPLATE [Suspect]
     Indication: LYMPHOMA
     Dates: start: 20080916, end: 20081202

REACTIONS (2)
  - BONE MARROW FAILURE [None]
  - DRUG INEFFECTIVE [None]
